FAERS Safety Report 6069747-8 (Version None)
Quarter: 2009Q1

REPORT INFORMATION
  Report Type: 
  Country: None (occurrence: None)
  Receive Date: 20090209
  Receipt Date: 20090130
  Transmission Date: 20090719
  Serious: Yes (Hospitalization, Other)
  Sender: FDA-Public Use
  Company Number: US-AMGEN-QUU327818

PATIENT
  Sex: Male
  Weight: 84 kg

DRUGS (34)
  1. ENBREL [Suspect]
     Indication: RHEUMATOID ARTHRITIS
     Route: 058
     Dates: start: 20080301
  2. MORPHINE [Concomitant]
  3. METHADONE HCL [Concomitant]
  4. HYDROCHLOROTHIAZIDE [Concomitant]
  5. EFFEXOR [Concomitant]
  6. LEVOTHYROXINE [Concomitant]
  7. VALIUM [Concomitant]
  8. K-DUR [Concomitant]
  9. PREDNISONE TAB [Concomitant]
  10. PRILOSEC [Concomitant]
  11. MIRAPEX [Concomitant]
  12. PROZAC [Concomitant]
  13. MULTI-VITAMINS [Concomitant]
  14. TYLENOL [Concomitant]
  15. ASPIRIN [Concomitant]
  16. DIOVAN [Concomitant]
  17. KLONOPIN [Concomitant]
  18. VICODIN [Concomitant]
  19. NITROGLYCERIN [Concomitant]
  20. QVAR 40 [Concomitant]
     Route: 055
  21. ZANTAC [Concomitant]
  22. TRAZODONE HCL [Concomitant]
  23. ALBUTEROL [Concomitant]
  24. MUCINEX [Concomitant]
  25. TESTOSTERONE [Concomitant]
  26. ZOMIG [Concomitant]
  27. HYDROCODONE [Concomitant]
  28. TOPROL-XL [Concomitant]
  29. BENADRYL [Concomitant]
  30. BECLOMETHASONE DIPROPIONATE [Concomitant]
  31. CALCIUM/VITAMINS NOS [Concomitant]
  32. DOCUSATE [Concomitant]
  33. LEUCOVORIN CALCIUM [Concomitant]
  34. METHOTREXATE [Concomitant]

REACTIONS (28)
  - ADRENAL INSUFFICIENCY [None]
  - ANXIETY [None]
  - ASPIRATION [None]
  - CHEST PAIN [None]
  - CLOSTRIDIUM DIFFICILE COLITIS [None]
  - DECREASED APPETITE [None]
  - DEHYDRATION [None]
  - GAIT DISTURBANCE [None]
  - HYPONATRAEMIA [None]
  - LUMBAR SPINAL STENOSIS [None]
  - MENTAL STATUS CHANGES [None]
  - MITRAL VALVE INCOMPETENCE [None]
  - MUSCULOSKELETAL STIFFNESS [None]
  - PAIN [None]
  - PNEUMONIA [None]
  - PNEUMONIA ASPIRATION [None]
  - POLYARTHRITIS [None]
  - POOR QUALITY SLEEP [None]
  - RENAL FAILURE ACUTE [None]
  - RESPIRATORY FAILURE [None]
  - ROAD TRAFFIC ACCIDENT [None]
  - SEPSIS SYNDROME [None]
  - SHOCK [None]
  - SINUS TACHYCARDIA [None]
  - STAPHYLOCOCCAL INFECTION [None]
  - SYSTEMIC INFLAMMATORY RESPONSE SYNDROME [None]
  - TOOTH EXTRACTION [None]
  - TRICUSPID VALVE INCOMPETENCE [None]
